FAERS Safety Report 6891446-0 (Version None)
Quarter: 2010Q3

REPORT INFORMATION
  Report Type: 
  Country: None (occurrence: None)
  Receive Date: 20100731
  Receipt Date: 20070611
  Transmission Date: 20110219
  Serious: No
  Sender: FDA-Public Use
  Company Number: US-PFIZER INC-2007048477

PATIENT
  Sex: Male

DRUGS (1)
  1. FLAGYL [Suspect]
     Indication: CROHN'S DISEASE
     Dates: end: 20070611

REACTIONS (2)
  - PAIN IN EXTREMITY [None]
  - PARAESTHESIA [None]
